FAERS Safety Report 21159620 (Version 2)
Quarter: 2022Q3

REPORT INFORMATION
  Report Type: Spontaneous
  Country: CN (occurrence: None)
  Receive Date: 20220802
  Receipt Date: 20220907
  Transmission Date: 20221027
  Serious: Yes (Other)
  Sender: FDA-Public Use
  Company Number: CN-ROCHE-3148878

PATIENT
  Age: 65 Year
  Sex: Male

DRUGS (19)
  1. GAZYVA [Suspect]
     Active Substance: OBINUTUZUMAB
     Indication: Diffuse large B-cell lymphoma stage II
     Dosage: D0, D7, D14, G-ICE
     Route: 042
     Dates: start: 20220616
  2. GAZYVA [Suspect]
     Active Substance: OBINUTUZUMAB
     Dosage: D0, G-ICE
     Route: 042
     Dates: start: 20220710
  3. MABTHERA [Suspect]
     Active Substance: RITUXIMAB
     Indication: Diffuse large B-cell lymphoma stage II
     Dosage: R-CDOP, D0
     Route: 065
     Dates: start: 20210225
  4. MABTHERA [Suspect]
     Active Substance: RITUXIMAB
     Dosage: R-CDOP
     Route: 065
     Dates: start: 20210529
  5. MABTHERA [Suspect]
     Active Substance: RITUXIMAB
     Dosage: R
     Route: 065
     Dates: start: 20210728
  6. IFOSFAMIDE [Concomitant]
     Active Substance: IFOSFAMIDE
     Indication: Diffuse large B-cell lymphoma stage II
     Dosage: D1-3, G-ICE
     Dates: start: 20220616
  7. IFOSFAMIDE [Concomitant]
     Active Substance: IFOSFAMIDE
     Dosage: D1-3, G-ICE
     Dates: start: 20220710
  8. CARBOPLATIN [Concomitant]
     Active Substance: CARBOPLATIN
     Indication: Diffuse large B-cell lymphoma stage II
     Dosage: D1, G-ICE
     Dates: start: 20220616
  9. CARBOPLATIN [Concomitant]
     Active Substance: CARBOPLATIN
     Dosage: D1, G-ICE
     Dates: start: 20220710
  10. ETOPOSIDE [Concomitant]
     Active Substance: ETOPOSIDE
     Indication: Diffuse large B-cell lymphoma stage II
     Dosage: D1-3, G-ICE
     Dates: start: 20220616
  11. ETOPOSIDE [Concomitant]
     Active Substance: ETOPOSIDE
     Dosage: D1-3, G-ICE
     Dates: start: 20220710
  12. CYCLOPHOSPHAMIDE [Concomitant]
     Active Substance: CYCLOPHOSPHAMIDE
     Indication: Diffuse large B-cell lymphoma stage II
     Dosage: R-CDOP, D1
     Dates: start: 20210225
  13. CYCLOPHOSPHAMIDE [Concomitant]
     Active Substance: CYCLOPHOSPHAMIDE
     Dosage: RCDOP
     Dates: start: 20210529
  14. VINDESINE [Concomitant]
     Active Substance: VINDESINE
     Indication: Diffuse large B-cell lymphoma stage II
     Dosage: R-CDOP, D1
     Dates: start: 20210225
  15. VINDESINE [Concomitant]
     Active Substance: VINDESINE
     Dosage: RCDOP
     Dates: start: 20210529
  16. PREDNISONE [Concomitant]
     Active Substance: PREDNISONE
     Indication: Diffuse large B-cell lymphoma stage II
     Dosage: R-CDOP,D1-5
     Dates: start: 20210225
  17. PREDNISONE [Concomitant]
     Active Substance: PREDNISONE
     Dosage: RCDOP
     Dates: start: 20210529
  18. DOXORUBICIN HYDROCHLORIDE [Concomitant]
     Active Substance: DOXORUBICIN HYDROCHLORIDE
     Indication: Diffuse large B-cell lymphoma stage II
     Dosage: R-CDOP, 20 MG D1, 40 MG D2
     Dates: start: 20210225
  19. DOXORUBICIN HYDROCHLORIDE [Concomitant]
     Active Substance: DOXORUBICIN HYDROCHLORIDE
     Dosage: RCDOP
     Dates: start: 20210529

REACTIONS (2)
  - Agranulocytosis [Unknown]
  - Off label use [Unknown]
